FAERS Safety Report 13690110 (Version 1)
Quarter: 2017Q2

REPORT INFORMATION
  Report Type: Spontaneous
  Country: DE (occurrence: DE)
  Receive Date: 20170626
  Receipt Date: 20170626
  Transmission Date: 20170830
  Serious: Yes (Hospitalization)
  Sender: FDA-Public Use
  Company Number: DE-BAYER-2017-116735

PATIENT
  Age: 40 Year
  Sex: Female

DRUGS (1)
  1. MIRENA [Suspect]
     Active Substance: LEVONORGESTREL
     Dosage: 20 MCG/24HR, CONT
     Route: 015
     Dates: start: 20110116, end: 20160513

REACTIONS (7)
  - Depression [Recovering/Resolving]
  - Sleep disorder [Recovered/Resolved]
  - Mood altered [Recovering/Resolving]
  - Anxiety disorder [Recovered/Resolved]
  - Panic attack [Recovered/Resolved]
  - Restlessness [Recovered/Resolved]
  - Stress [Recovering/Resolving]
